FAERS Safety Report 9712596 (Version 2)
Quarter: 2013Q4

REPORT INFORMATION
  Report Type: Spontaneous
  Country: US (occurrence: US)
  Receive Date: 20131126
  Receipt Date: 20131126
  Transmission Date: 20140711
  Serious: No
  Sender: FDA-Public Use
  Company Number: US-BRISTOL-MYERS SQUIBB COMPANY-19202167

PATIENT
  Age: 50 Year
  Sex: Female
  Weight: 99.77 kg

DRUGS (6)
  1. BYDUREON [Suspect]
     Indication: TYPE 2 DIABETES MELLITUS
     Route: 058
     Dates: start: 20130617
  2. TOPAMAX [Suspect]
     Indication: SCHIZOAFFECTIVE DISORDER
     Dates: start: 2013
  3. PRAVACOL [Concomitant]
  4. SYNTHROID [Concomitant]
  5. GEODON [Concomitant]
  6. METFORMIN [Concomitant]

REACTIONS (2)
  - Urine abnormality [Not Recovered/Not Resolved]
  - Paraesthesia [Not Recovered/Not Resolved]
